FAERS Safety Report 5694152-3 (Version None)
Quarter: 2008Q2

REPORT INFORMATION
  Report Type: 
  Country: None (occurrence: None)
  Receive Date: 20080402
  Receipt Date: 20080322
  Transmission Date: 20081010
  Serious: Yes (Congenital Anomaly)
  Sender: FDA-Public Use
  Company Number: 8031099

PATIENT
  Age: 24 Month
  Sex: Male

DRUGS (1)
  1. KEPPRA [Suspect]
     Indication: LOSS OF CONSCIOUSNESS
     Dosage: 2000 MG /D TRP
     Route: 064

REACTIONS (3)
  - BLINDNESS [None]
  - CONVULSION [None]
  - DRUG EXPOSURE DURING PREGNANCY [None]
